FAERS Safety Report 5715487-1 (Version None)
Quarter: 2008Q2

REPORT INFORMATION
  Report Type: 
  Country: None (occurrence: None)
  Receive Date: 20080422
  Receipt Date: 20080407
  Transmission Date: 20081010
  Serious: Yes (Hospitalization, Other)
  Sender: FDA-Public Use
  Company Number: 2008S10004375

PATIENT
  Age: 17 Year
  Sex: Male
  Weight: 54 kg

DRUGS (1)
  1. ALBUTEROL [Suspect]
     Indication: ASTHMA
     Dosage: 2.5 MG; INHALATION; 15 MG;HR;INHALATION
     Route: 055

REACTIONS (8)
  - BLOOD GLUCOSE INCREASED [None]
  - BLOOD PRESSURE INCREASED [None]
  - DRUG INEFFECTIVE [None]
  - GLYCOSURIA [None]
  - HYPOTENSION [None]
  - METABOLIC ACIDOSIS [None]
  - TACHYCARDIA [None]
  - TACHYPNOEA [None]
